FAERS Safety Report 11175682 (Version 1)
Quarter: 2015Q2

REPORT INFORMATION
  Report Type: Spontaneous
  Country: US (occurrence: US)
  Receive Date: 20150609
  Receipt Date: 20150609
  Transmission Date: 20150821
  Serious: No
  Sender: FDA-Public Use
  Company Number: US-GLAXOSMITHKLINE-US2015076793

PATIENT
  Age: 23 Year

DRUGS (1)
  1. FLONASE [Suspect]
     Active Substance: FLUTICASONE PROPIONATE
     Indication: HYPERSENSITIVITY
     Dosage: UNK

REACTIONS (13)
  - Nausea [Unknown]
  - Dizziness [Unknown]
  - Headache [Unknown]
  - Mood swings [Unknown]
  - Nervousness [Unknown]
  - Poor quality sleep [Unknown]
  - Tremor [Unknown]
  - Influenza like illness [Unknown]
  - Decreased appetite [Unknown]
  - Hypoaesthesia [Unknown]
  - Anxiety [Unknown]
  - Pain [Unknown]
  - Crying [Unknown]
